FAERS Safety Report 14983708 (Version 1)
Quarter: 2018Q2

REPORT INFORMATION
  Report Type: Spontaneous
  Country: US (occurrence: US)
  Receive Date: 20180517
  Receipt Date: 20180517
  Transmission Date: 20180711
  Serious: Yes (Other)
  Sender: FDA-Public Use
  Company Number: None

PATIENT
  Age: 84 Year
  Sex: Female
  Weight: 58.5 kg

DRUGS (4)
  1. COLACE [Concomitant]
     Active Substance: DOCUSATE SODIUM
  2. CAPECITABINE. [Suspect]
     Active Substance: CAPECITABINE
     Indication: COLON CANCER
     Route: 048
     Dates: start: 20180313
  3. METOPROLOL. [Concomitant]
     Active Substance: METOPROLOL
  4. OXYCODONE [Concomitant]
     Active Substance: OXYCODONE

REACTIONS (3)
  - Decreased appetite [None]
  - Asthenia [None]
  - Nausea [None]
